FAERS Safety Report 4927716-2 (Version None)
Quarter: 2006Q1

REPORT INFORMATION
  Report Type: 
  Country: None (occurrence: None)
  Receive Date: 20060131
  Receipt Date: 20051111
  Transmission Date: 20060701
  Serious: No
  Sender: FDA-Public Use
  Company Number: 200519413US

PATIENT

DRUGS (1)
  1. KETEK [Suspect]
     Dosage: PO

REACTIONS (1)
  - LIVER FUNCTION TEST ABNORMAL [None]
